FAERS Safety Report 14392642 (Version 1)
Quarter: 2018Q1

REPORT INFORMATION
  Report Type: Spontaneous
  Country: SE (occurrence: SE)
  Receive Date: 20180116
  Receipt Date: 20180116
  Transmission Date: 20180509
  Serious: Yes (Hospitalization)
  Sender: FDA-Public Use
  Company Number: PHHY2018SE004639

PATIENT
  Age: 85 Year
  Sex: Female

DRUGS (1)
  1. CANDESARTAN - 1 A PHARMA [Suspect]
     Active Substance: CANDESARTAN
     Indication: PRODUCT USED FOR UNKNOWN INDICATION
     Route: 048

REACTIONS (2)
  - Product substitution issue [Recovered/Resolved with Sequelae]
  - Angioedema [Recovered/Resolved with Sequelae]
